FAERS Safety Report 4487216-3 (Version None)
Quarter: 2004Q4

REPORT INFORMATION
  Report Type: 
  Country: None (occurrence: None)
  Receive Date: 20041022
  Receipt Date: 20041011
  Transmission Date: 20050328
  Serious: Yes (Hospitalization)
  Sender: FDA-Public Use
  Company Number: 2004CG02049

PATIENT
  Age: 85 Year
  Sex: Female
  Weight: 75 kg

DRUGS (13)
  1. OMEPRAZOLE [Suspect]
     Dosage: 20 MG DAILY PO
     Route: 048
     Dates: start: 20040502
  2. COLCHICINE [Suspect]
     Dosage: 500 UG DAILY PO
     Route: 048
     Dates: end: 20040506
  3. AUGMENTIN '125' [Suspect]
     Indication: BRONCHOPNEUMOPATHY
     Dosage: 1 G DAILY PO
     Route: 048
     Dates: start: 20040502, end: 20040506
  4. SERETIDE [Suspect]
     Indication: BRONCHITIS ACUTE
     Dosage: 500 UG BID IH
     Route: 055
     Dates: end: 20040506
  5. EFFEXOR [Suspect]
     Indication: DYSTHYMIC DISORDER
     Dosage: 37.5 MG BID PO
     Route: 048
     Dates: start: 20040429, end: 20040506
  6. ASASANTIN [Concomitant]
  7. NOCTRAN [Concomitant]
  8. CACIT D3 [Concomitant]
  9. CODOLIPRANE [Concomitant]
  10. FORLAX [Concomitant]
  11. FUNGIZONE [Concomitant]
  12. CLAMOXYL/SCH/ [Concomitant]
  13. CORTANCYL [Concomitant]

REACTIONS (8)
  - AGITATION [None]
  - BILE DUCT STONE [None]
  - BRONCHOPNEUMOPATHY [None]
  - CONDITION AGGRAVATED [None]
  - DIARRHOEA [None]
  - DYSTHYMIC DISORDER [None]
  - GENERAL PHYSICAL HEALTH DETERIORATION [None]
  - SCREAMING [None]
